FAERS Safety Report 5290775-4 (Version None)
Quarter: 2007Q2

REPORT INFORMATION
  Report Type: 
  Country: None (occurrence: None)
  Receive Date: 20070409
  Receipt Date: 20070407
  Transmission Date: 20071010
  Serious: Yes (Hospitalization)
  Sender: FDA-Public Use
  Company Number: US-GENENTECH-236067

PATIENT
  Sex: Female

DRUGS (1)
  1. RITUXAN [Suspect]
     Indication: HEPATIC NEOPLASM MALIGNANT
     Dosage: 375 MG/M2, 1/WEEK
     Route: 042
     Dates: start: 20070203

REACTIONS (1)
  - RENAL FAILURE ACUTE [None]
